FAERS Safety Report 14425152 (Version 4)
Quarter: 2018Q2

REPORT INFORMATION
  Report Type: Spontaneous
  Country: CA (occurrence: IE)
  Receive Date: 20180123
  Receipt Date: 20180510
  Transmission Date: 20180711
  Serious: Yes (Other)
  Sender: FDA-Public Use
  Company Number: IE-ALEXION-A201800324

PATIENT
  Age: 9 Month
  Sex: Male

DRUGS (3)
  1. SOLIRIS [Suspect]
     Active Substance: ECULIZUMAB
     Dosage: 300 MG, Q2W
     Route: 065
  2. SOLIRIS [Suspect]
     Active Substance: ECULIZUMAB
     Indication: ATYPICAL HAEMOLYTIC URAEMIC SYNDROME
     Dosage: 600 MG, UNK
     Route: 065
  3. SOLIRIS [Suspect]
     Active Substance: ECULIZUMAB
     Dosage: 300 MG, EVERY 10 DAYS
     Route: 065

REACTIONS (11)
  - Leukodystrophy [Unknown]
  - Blood creatinine increased [Unknown]
  - Complement split products increased [Unknown]
  - Upper respiratory tract infection [Unknown]
  - Blood lactate dehydrogenase increased [Unknown]
  - Inappropriate schedule of drug administration [Unknown]
  - Condition aggravated [Unknown]
  - Haptoglobin decreased [Unknown]
  - Head circumference abnormal [Unknown]
  - Metachromatic leukodystrophy [Unknown]
  - Optic atrophy [Unknown]
